FAERS Safety Report 11800861 (Version 2)
Quarter: 2015Q4

REPORT INFORMATION
  Report Type: Report from Study
  Country: US (occurrence: US)
  Receive Date: 20151204
  Receipt Date: 20151217
  Transmission Date: 20160305
  Serious: Yes (Death)
  Sender: FDA-Public Use
  Company Number: US-BEH-2015056399

PATIENT
  Age: 59 Year
  Sex: Male

DRUGS (4)
  1. WARFARIN [Concomitant]
     Active Substance: WARFARIN
     Indication: DEEP VEIN THROMBOSIS
  2. HEPARIN [Concomitant]
     Active Substance: HEPARIN SODIUM
     Route: 041
  3. VITAMIN K [Suspect]
     Active Substance: PHYTONADIONE
     Indication: PROCOAGULANT THERAPY
     Route: 042
  4. KCENTRA [Suspect]
     Active Substance: COAGULATION FACTOR IX HUMAN\COAGULATION FACTOR VII HUMAN\COAGULATION FACTOR X HUMAN\PROTEIN C\PROTEIN S HUMAN\PROTHROMBIN
     Indication: UPPER GASTROINTESTINAL HAEMORRHAGE

REACTIONS (8)
  - Splenic infarction [Fatal]
  - Peritonitis [Fatal]
  - Intestinal obstruction [Fatal]
  - Gastrointestinal necrosis [Fatal]
  - Septic shock [Fatal]
  - Hepatic ischaemia [Fatal]
  - Embolism [Fatal]
  - Intestinal ischaemia [Fatal]
